FAERS Safety Report 9474945 (Version 2)
Quarter: 2013Q4

REPORT INFORMATION
  Report Type: Spontaneous
  Country: CA (occurrence: CA)
  Receive Date: 20130824
  Receipt Date: 20131114
  Transmission Date: 20140711
  Serious: Yes (Hospitalization, Other)
  Sender: FDA-Public Use
  Company Number: CA-JNJFOC-20130805869

PATIENT
  Age: 74 Year
  Sex: Female
  Weight: 65.77 kg

DRUGS (6)
  1. NICODERM STEP 3 ORIGINAL [Suspect]
     Indication: SMOKING CESSATION THERAPY
     Dosage: 2 PATCHES
     Route: 061
  2. NICODERM STEP 3 ORIGINAL [Suspect]
     Indication: SMOKING CESSATION THERAPY
     Route: 061
  3. NICODERM STEP 3 ORIGINAL [Suspect]
     Indication: SMOKING CESSATION THERAPY
     Dosage: 1.5 PATCHES
     Route: 061
  4. ATORVASTATIN [Concomitant]
     Indication: BLOOD CHOLESTEROL INCREASED
     Route: 065
  5. BISOPROLOL [Concomitant]
     Indication: HYPERTENSION
     Route: 065
  6. XALATAN [Concomitant]
     Indication: GLAUCOMA
     Dosage: INTERVAL 2 YEARS
     Route: 065

REACTIONS (4)
  - Chronic obstructive pulmonary disease [Unknown]
  - Therapy change [Unknown]
  - Nicotine dependence [Unknown]
  - Drug ineffective [Unknown]
